FAERS Safety Report 14759137 (Version 7)
Quarter: 2019Q2

REPORT INFORMATION
  Report Type: Spontaneous
  Country: GB (occurrence: GB)
  Receive Date: 20180413
  Receipt Date: 20190516
  Transmission Date: 20190711
  Serious: Yes (Life-Threatening, Hospitalization, Other)
  Sender: FDA-Public Use
  Company Number: GB-B.I. PHARMACEUTICALS,INC./RIDGEFIELD-2018-BI-020105

PATIENT
  Age: 29 Year
  Sex: Female

DRUGS (14)
  1. ATROVENT [Suspect]
     Active Substance: IPRATROPIUM BROMIDE
     Indication: ASTHMA
     Dosage: 0.5 MG, UNK, NEBULISATION
     Route: 065
  2. HYDROCORTISONE. [Suspect]
     Active Substance: HYDROCORTISONE
     Indication: ASTHMA
     Dosage: 100 MG, UNK
     Route: 042
  3. SALBUTAMOL [Suspect]
     Active Substance: ALBUTEROL
     Indication: ASTHMA
     Dosage: 15 MG, 2 BOLUSES, (NEBULISER : IN REPEATED DOSES)
     Route: 042
  4. PREDNISOLONE. [Suspect]
     Active Substance: PREDNISOLONE
     Indication: ASTHMA
     Dosage: 30 MG, UNK
     Route: 048
  5. SALBUTAMOL [Suspect]
     Active Substance: ALBUTEROL
     Indication: ASTHMA
     Dosage: UNK
     Route: 042
  6. MAGNESIUM SULFATE. [Suspect]
     Active Substance: MAGNESIUM SULFATE
     Indication: ASTHMA
     Dosage: UNK
     Route: 042
  7. ATROVENT [Suspect]
     Active Substance: IPRATROPIUM BROMIDE
     Indication: ASTHMA
  8. THEOPHYLLINE [Suspect]
     Active Substance: THEOPHYLLINE ANHYDROUS
     Indication: ASTHMA
     Dosage: UNK
     Route: 065
  9. MONTELUKAST SODIUM. [Suspect]
     Active Substance: MONTELUKAST SODIUM
     Indication: ASTHMA
     Dosage: UNK
     Route: 065
  10. SALBUTAMOL [Suspect]
     Active Substance: ALBUTEROL
     Dosage: 12.3 MG, UNK
     Route: 042
  11. EPINEPHRINE. [Suspect]
     Active Substance: EPINEPHRINE
     Indication: ASTHMA
     Dosage: 350 MCG, UNK (DILUTED IN SMALL INCREMENTS)
     Route: 065
  12. KETAMINE [Suspect]
     Active Substance: KETAMINE
     Indication: ASTHMA
     Dosage: UNK (INCREASED TO 45 MICROG/KG/MIN), INTRAVENOUS INFUSION
     Route: 042
  13. SALBUTAMOL [Suspect]
     Active Substance: ALBUTEROL
     Dosage: 250 MCG, UNK (2 BOLUSES) ROUTE 040
     Route: 065
  14. SEVOFLURANE. [Suspect]
     Active Substance: SEVOFLURANE
     Indication: ASTHMA
     Dosage: DAILY DOSE-8 %
     Route: 055

REACTIONS (16)
  - Cyanosis [Recovering/Resolving]
  - Hypercapnia [Recovering/Resolving]
  - Wheezing [Recovering/Resolving]
  - Blood bicarbonate decreased [Recovering/Resolving]
  - Oxygen saturation decreased [Recovering/Resolving]
  - Blood pH decreased [Recovering/Resolving]
  - Blood lactic acid increased [Recovering/Resolving]
  - Drug ineffective [Unknown]
  - Dyspnoea [Recovering/Resolving]
  - Respiratory rate increased [Recovering/Resolving]
  - Respiratory acidosis [Recovering/Resolving]
  - PCO2 increased [Recovering/Resolving]
  - Drug ineffective [Recovering/Resolving]
  - Lung hyperinflation [Recovering/Resolving]
  - PO2 decreased [Recovering/Resolving]
  - Acute respiratory failure [Recovered/Resolved]
